FAERS Safety Report 24152663 (Version 1)
Quarter: 2024Q3

REPORT INFORMATION
  Report Type: Spontaneous
  Country: US (occurrence: None)
  Receive Date: 20240729
  Receipt Date: 20240729
  Transmission Date: 20241017
  Serious: Yes (Other)
  Sender: Public
  Company Number: None

PATIENT
  Age: 54 Year
  Sex: Male
  Weight: 79 kg

DRUGS (1)
  1. ROPINIROLE [Suspect]
     Active Substance: ROPINIROLE
     Indication: Restless legs syndrome
     Dosage: OTHER QUANTITY : 0.25 MG;?FREQUENCY : AT BEDTIME;?
     Route: 048
     Dates: start: 20240517, end: 20240519

REACTIONS (4)
  - Nightmare [None]
  - Poor quality sleep [None]
  - Emotional distress [None]
  - Psychotic disorder [None]

NARRATIVE: CASE EVENT DATE: 20240518
